FAERS Safety Report 10271666 (Version 1)
Quarter: 2014Q3

REPORT INFORMATION
  Report Type: Spontaneous
  Country: US (occurrence: US)
  Receive Date: 20140701
  Receipt Date: 20140701
  Transmission Date: 20150326
  Serious: No
  Sender: FDA-Public Use
  Company Number: US-SANOFI-AVENTIS-2013SA094351

PATIENT
  Age: 13 Year
  Sex: Female
  Weight: 44.45 kg

DRUGS (11)
  1. NORMAL SALINE [Concomitant]
     Active Substance: SODIUM CHLORIDE
  2. MULTIVITAMINS [Concomitant]
     Active Substance: VITAMINS
  3. WATER FOR INJECTION [Concomitant]
     Active Substance: WATER
  4. DIPHENHYDRAMINE [Concomitant]
     Active Substance: DIPHENHYDRAMINE
  5. SODIUM CHLORIDE. [Concomitant]
     Active Substance: SODIUM CHLORIDE
  6. HUMULIN NOS [Concomitant]
     Active Substance: INSULIN HUMAN
  7. CEREZYME [Suspect]
     Active Substance: IMIGLUCERASE
     Indication: LIPIDOSIS
     Dosage: DOSE:2400 UNIT(S)
     Route: 065
     Dates: start: 20121129
  8. EPINEPHRINE. [Concomitant]
     Active Substance: EPINEPHRINE
  9. HUMALOG [Concomitant]
     Active Substance: INSULIN LISPRO
  10. LIDOCAINE. [Concomitant]
     Active Substance: LIDOCAINE
  11. LEVEMIR [Concomitant]
     Active Substance: INSULIN DETEMIR

REACTIONS (1)
  - Headache [Unknown]
